FAERS Safety Report 26125608 (Version 2)
Quarter: 2025Q4

REPORT INFORMATION
  Report Type: Spontaneous
  Country: RU (occurrence: RU)
  Receive Date: 20251205
  Receipt Date: 20251216
  Transmission Date: 20260117
  Serious: Yes (Life-Threatening, Hospitalization, Other)
  Sender: RANBAXY
  Company Number: RU-SUN PHARMACEUTICAL INDUSTRIES LTD-2025R1-540100

PATIENT
  Age: 4 Year
  Sex: Female
  Weight: 2.76 kg

DRUGS (2)
  1. VALPROIC ACID [Suspect]
     Active Substance: VALPROIC ACID
     Indication: Partial seizures
     Dosage: 150 MILLIGRAM, BID
     Route: 065
  2. LEVETIRACETAM [Suspect]
     Active Substance: LEVETIRACETAM
     Indication: Partial seizures
     Dosage: 1 MILLILITER, BID
     Route: 065

REACTIONS (4)
  - Condition aggravated [Unknown]
  - Disease progression [Unknown]
  - Lung abscess [Unknown]
  - Weight gain poor [Unknown]

NARRATIVE: CASE EVENT DATE: 20250127
